FAERS Safety Report 9123176 (Version 1)
Quarter: 2013Q1

REPORT INFORMATION
  Report Type: Spontaneous
  Country: US (occurrence: US)
  Receive Date: 20130115
  Receipt Date: 20130115
  Transmission Date: 20140127
  Serious: Yes (Other)
  Sender: FDA-Public Use
  Company Number: US-009507513-1301XAA004179

PATIENT
  Age: 8 Year
  Sex: Male

DRUGS (2)
  1. SINGULAIR [Suspect]
     Dosage: 5 MG, QD
  2. VIANI [Suspect]
     Dosage: 2 UNIT TWICE DAILY
     Route: 055

REACTIONS (1)
  - Asthma [Unknown]
